FAERS Safety Report 6642230-4 (Version None)
Quarter: 2010Q1

REPORT INFORMATION
  Report Type: 
  Country: None (occurrence: None)
  Receive Date: 20100316
  Receipt Date: 20100303
  Transmission Date: 20100710
  Serious: Yes (Death, Hospitalization, Other)
  Sender: FDA-Public Use
  Company Number: 201000098

PATIENT
  Age: 56 Year
  Sex: Female

DRUGS (11)
  1. DEXAMETHASONE SODIUM PHOSPHATE [Suspect]
     Indication: DRUG USE FOR UNKNOWN INDICATION
     Dosage: INTRAVENOUS
     Route: 042
  2. CYTARABINE [Suspect]
  3. DAUNORUBICIN HCL [Suspect]
  4. PREDNISONE TAB [Suspect]
     Dosage: 20 MG, DAILY
  5. ACYCLOVIR SODIUM [Concomitant]
  6. ATOVAQUONE [Concomitant]
  7. NYSTATIN [Concomitant]
  8. METRONIDAZOLE [Concomitant]
  9. MICAFUNG [Concomitant]
  10. VORICONAZOLE [Concomitant]
  11. UNSPECIFIED ANTIBACTERIALS [Concomitant]

REACTIONS (12)
  - CATHETER SITE ERYTHEMA [None]
  - CATHETER SITE INFECTION [None]
  - ESCHAR [None]
  - GEOTRICHUM INFECTION [None]
  - HAEMODIALYSIS [None]
  - HYPOTENSION [None]
  - MENTAL STATUS CHANGES [None]
  - MULTI-ORGAN FAILURE [None]
  - NEUTROPENIA [None]
  - PLEURAL EFFUSION [None]
  - RENAL FAILURE ACUTE [None]
  - UNRESPONSIVE TO STIMULI [None]
